FAERS Safety Report 15254889 (Version 2)
Quarter: 2018Q3

REPORT INFORMATION
  Report Type: Report from Study
  Country: MN (occurrence: MN)
  Receive Date: 20180808
  Receipt Date: 20180809
  Transmission Date: 20181010
  Serious: Yes (Death)
  Sender: FDA-Public Use
  Company Number: MN-JNJFOC-20180805592

PATIENT
  Sex: Male

DRUGS (12)
  1. PYRAZINAMIDE. [Suspect]
     Active Substance: PYRAZINAMIDE
     Indication: TUBERCULOSIS
     Route: 048
     Dates: start: 20171206, end: 20180728
  2. DEXTROSE. [Concomitant]
     Active Substance: DEXTROSE
     Route: 065
     Dates: start: 20171130, end: 20180728
  3. ETHAMBUTOL [Suspect]
     Active Substance: ETHAMBUTOL HYDROCHLORIDE
     Indication: TUBERCULOSIS
     Route: 048
     Dates: start: 20171206, end: 20180728
  4. POTASSIUM CHLORIDE. [Concomitant]
     Active Substance: POTASSIUM CHLORIDE
     Route: 065
     Dates: start: 20171201, end: 20180728
  5. MEGLUMINE [Concomitant]
     Active Substance: MEGLUMINE
     Route: 065
     Dates: start: 20171208, end: 20180728
  6. PYRIDOXINE [Concomitant]
     Active Substance: PYRIDOXINE
     Route: 065
     Dates: start: 20171206, end: 20180728
  7. INOSINE [Concomitant]
     Active Substance: INOSINE
     Route: 065
     Dates: start: 20171128, end: 20180728
  8. TMC207 [Suspect]
     Active Substance: BEDAQUILINE
     Indication: TUBERCULOSIS
     Route: 048
     Dates: start: 20171220, end: 20180725
  9. LEVOFLOXACIN. [Suspect]
     Active Substance: LEVOFLOXACIN
     Indication: TUBERCULOSIS
     Route: 048
     Dates: start: 20171206, end: 20180728
  10. VITAMINE C [Concomitant]
     Active Substance: ASCORBIC ACID
     Route: 065
     Dates: start: 20171130, end: 20180728
  11. NICOTINIC ACID [Concomitant]
     Active Substance: NIACIN
     Route: 065
     Dates: start: 20180201, end: 20180728
  12. CLOFAZIMINE [Suspect]
     Active Substance: CLOFAZIMINE
     Indication: TUBERCULOSIS
     Route: 048
     Dates: start: 20171206, end: 20180728

REACTIONS (1)
  - Death [Fatal]
